FAERS Safety Report 7505445-9 (Version None)
Quarter: 2011Q2

REPORT INFORMATION
  Report Type: 
  Country: None (occurrence: None)
  Receive Date: 20110526
  Receipt Date: 20110519
  Transmission Date: 20111010
  Serious: Yes (Death, Other)
  Sender: FDA-Public Use
  Company Number: PHHY2010MX66907

PATIENT
  Age: 67 Year
  Sex: Female

DRUGS (2)
  1. DIOVAN [Suspect]
     Dosage: 80 MG DAILY
     Dates: start: 20080101
  2. DIOVAN HCT [Suspect]
     Indication: HYPERTENSION
     Dosage: 160 MG VALS AND 12.5 MG HYDRO, 1 DF PER DAY
     Route: 048
     Dates: start: 20030101

REACTIONS (4)
  - NEOPLASM MALIGNANT [None]
  - METASTASES TO LUNG [None]
  - PULMONARY OEDEMA [None]
  - HEPATIC CANCER METASTATIC [None]
